FAERS Safety Report 4772598-5 (Version None)
Quarter: 2005Q3

REPORT INFORMATION
  Report Type: 
  Country: None (occurrence: None)
  Receive Date: 20050916
  Receipt Date: 20050916
  Transmission Date: 20060218
  Serious: Yes (Other)
  Sender: FDA-Public Use
  Company Number: None

PATIENT
  Age: 68 Year
  Sex: Male

DRUGS (2)
  1. ERTAPENEM 1 GRAM MERCK [Suspect]
     Indication: OSTEOMYELITIS
     Dosage: 1 GRAM Q24HOURS IV BOLUS
     Route: 040
     Dates: start: 20050607, end: 20050614
  2. ERTAPENEM 1 GRAM MERCK [Suspect]
     Dosage: 500 MG Q24 HOURS IV BOLUS
     Route: 040
     Dates: start: 20050614, end: 20050620

REACTIONS (1)
  - CONFUSIONAL STATE [None]
